FAERS Safety Report 22657856 (Version 1)
Quarter: 2023Q2

REPORT INFORMATION
  Report Type: Spontaneous
  Country: US (occurrence: US)
  Receive Date: 20230630
  Receipt Date: 20230630
  Transmission Date: 20230722
  Serious: No
  Sender: FDA-Public Use
  Company Number: US-Accord-303157

PATIENT
  Age: 63 Year
  Sex: Female
  Weight: 69.4 kg

DRUGS (6)
  1. CLONAZEPAM [Suspect]
     Active Substance: CLONAZEPAM
     Indication: Anxiety
     Dosage: DOSE: 2X/WEEK
  2. SYNTHROID [Concomitant]
     Active Substance: LEVOTHYROXINE SODIUM
     Dosage: ONGOING
  3. OMEPRAZOLE [Concomitant]
     Active Substance: OMEPRAZOLE
     Dosage: ONGOING
  4. ESTRADIOL [Concomitant]
     Active Substance: ESTRADIOL
     Dates: end: 2018
  5. CINNAMON [Concomitant]
     Active Substance: CINNAMON
  6. ESTRADIOL [Concomitant]
     Active Substance: ESTRADIOL
     Dates: start: 2022

REACTIONS (1)
  - Off label use [Unknown]
